FAERS Safety Report 6396649-X (Version None)
Quarter: 2009Q4

REPORT INFORMATION
  Report Type: 
  Country: None (occurrence: None)
  Receive Date: 20091012
  Receipt Date: 20090930
  Transmission Date: 20100525
  Serious: Yes (Other)
  Sender: FDA-Public Use
  Company Number: US-ELI_LILLY_AND_COMPANY-US200910000791

PATIENT
  Age: 33 Year
  Sex: Female

DRUGS (3)
  1. CYMBALTA [Suspect]
     Dosage: 30 MG, UNK
  2. XANAX [Concomitant]
     Indication: ANXIETY
  3. VALIUM [Concomitant]
     Indication: ANXIETY

REACTIONS (1)
  - LOSS OF CONSCIOUSNESS [None]
